FAERS Safety Report 19625386 (Version 3)
Quarter: 2021Q3

REPORT INFORMATION
  Report Type: Report from Study
  Country: US (occurrence: US)
  Receive Date: 20210728
  Receipt Date: 20210829
  Transmission Date: 20211014
  Serious: Yes (Other)
  Sender: FDA-Public Use
  Company Number: NVSC2021US170758

PATIENT
  Sex: Female

DRUGS (1)
  1. ENTRESTO [Suspect]
     Active Substance: SACUBITRIL\VALSARTAN
     Indication: PRODUCT USED FOR UNKNOWN INDICATION
     Dosage: 50 MG, BID (24/26MG HALF TAB)
     Route: 048
     Dates: start: 2020

REACTIONS (4)
  - Abdominal discomfort [Unknown]
  - Diabetes mellitus [Unknown]
  - Prescribed underdose [Unknown]
  - Wrong technique in product usage process [Unknown]
